FAERS Safety Report 21592727 (Version 1)
Quarter: 2022Q4

REPORT INFORMATION
  Report Type: Spontaneous
  Country: DE (occurrence: DE)
  Receive Date: 20221114
  Receipt Date: 20221114
  Transmission Date: 20230113
  Serious: Yes (Death, Life-Threatening, Hospitalization, Other)
  Sender: FDA-Public Use
  Company Number: DE-JNJFOC-20221111246

PATIENT
  Age: 8 Decade
  Sex: Female
  Weight: 67.5 kg

DRUGS (3)
  1. DEXAMETHASONE [Suspect]
     Active Substance: DEXAMETHASONE
     Indication: Plasma cell myeloma
     Dosage: DATE OF THE LAST DOSAGE BEFORE EVENT ONSET : 17-OCT-2022
     Route: 065
     Dates: start: 20221017, end: 20221020
  2. DARATUMUMAB [Suspect]
     Active Substance: DARATUMUMAB
     Indication: Plasma cell myeloma
     Dosage: DATE OF THE LAST DOSAGE BEFORE EVENT ONSET: 17-OCT-2022
     Route: 042
     Dates: start: 20221017, end: 20221020
  3. REVLIMID [Suspect]
     Active Substance: LENALIDOMIDE
     Indication: Plasma cell myeloma
     Dosage: DATE OF THE LAST DOSAGE BEFORE EVENT ONSET: 20-OCT-2022
     Route: 065
     Dates: start: 20221017, end: 20221020

REACTIONS (1)
  - Pneumonia [Fatal]

NARRATIVE: CASE EVENT DATE: 20221020
